FAERS Safety Report 9392306 (Version 1)
Quarter: 2013Q3

REPORT INFORMATION
  Report Type: Spontaneous
  Country: NL (occurrence: NL)
  Receive Date: 20130710
  Receipt Date: 20130710
  Transmission Date: 20140515
  Serious: Yes (Other)
  Sender: FDA-Public Use
  Company Number: NL-MERCK-1306NLD004574

PATIENT
  Age: 56 Year
  Sex: Female
  Weight: 81 kg

DRUGS (3)
  1. EZETROL [Suspect]
     Indication: HYPERCHOLESTEROLAEMIA
     Dosage: 10 MG, QD
     Route: 048
     Dates: start: 20130419, end: 20130422
  2. LEVEMIR [Interacting]
     Indication: TYPE 1 DIABETES MELLITUS
     Dosage: UNK, STRENGTH 100E/ML PATROON 3 ML
     Dates: start: 20070726
  3. NOVORAPID PENFILL [Interacting]
     Indication: TYPE 1 DIABETES MELLITUS
     Dosage: UNK, STRENGTH 100E/ML PATROON 3 ML

REACTIONS (2)
  - Loss of consciousness [Recovered/Resolved]
  - Drug interaction [Recovered/Resolved]
